FAERS Safety Report 7849251-4 (Version None)
Quarter: 2011Q4

REPORT INFORMATION
  Report Type: 
  Country: None (occurrence: None)
  Receive Date: 20111021
  Receipt Date: 20111010
  Transmission Date: 20120403
  Serious: No
  Sender: FDA-Public Use
  Company Number: 124808

PATIENT
  Sex: Female

DRUGS (1)
  1. METHOTREXATE [Suspect]
     Dosage: IV EVERY WEEK
     Route: 042
     Dates: start: 20110901, end: 20111001

REACTIONS (1)
  - MEDICATION ERROR [None]
